FAERS Safety Report 12627908 (Version 1)
Quarter: 2016Q3

REPORT INFORMATION
  Report Type: Spontaneous
  Country: GB (occurrence: GB)
  Receive Date: 20160807
  Receipt Date: 20160807
  Transmission Date: 20161109
  Serious: Yes (Disabling, Other)
  Sender: FDA-Public Use
  Company Number: GB-TEVA-681081ACC

PATIENT
  Age: 75 Year
  Sex: Male
  Weight: 76.2 kg

DRUGS (6)
  1. AMLODIPINE BESILATE [Suspect]
     Active Substance: AMLODIPINE BESYLATE
     Indication: ANGINA PECTORIS
     Route: 048
     Dates: start: 20091210, end: 20160701
  2. GTN [Concomitant]
     Active Substance: NITROGLYCERIN
  3. RAMIPRIL. [Concomitant]
     Active Substance: RAMIPRIL
  4. ATENOLOL. [Concomitant]
     Active Substance: ATENOLOL
  5. PRAVASTATIN SODIUM. [Concomitant]
     Active Substance: PRAVASTATIN SODIUM
  6. ASPIRIN. [Concomitant]
     Active Substance: ASPIRIN

REACTIONS (8)
  - Balance disorder [Unknown]
  - Drooling [Unknown]
  - Gait disturbance [Unknown]
  - Urinary incontinence [Unknown]
  - Parkinson^s disease [Not Recovered/Not Resolved]
  - Tremor [Unknown]
  - Dysphagia [Unknown]
  - Joint swelling [Recovered/Resolved]

NARRATIVE: CASE EVENT DATE: 20150402
